FAERS Safety Report 20506282 (Version 1)
Quarter: 2022Q1

REPORT INFORMATION
  Report Type: Spontaneous
  Country: US (occurrence: None)
  Receive Date: 20220222
  Receipt Date: 20220222
  Transmission Date: 20220424
  Serious: Yes (Hospitalization, Other)
  Sender: FDA-Public Use
  Company Number: None

PATIENT
  Age: 75 Year
  Sex: Male
  Weight: 104.5 kg

DRUGS (2)
  1. REGEN-COV [Suspect]
     Active Substance: CASIRIVIMAB\IMDEVIMAB
     Indication: COVID-19
     Dosage: FREQUENCY : ONCE;?
     Route: 041
     Dates: start: 20211216, end: 20211216
  2. REGEN-COV [Concomitant]
     Active Substance: CASIRIVIMAB\IMDEVIMAB
     Dates: start: 20211216, end: 20211216

REACTIONS (8)
  - Chills [None]
  - Tremor [None]
  - Asthenia [None]
  - Infusion related reaction [None]
  - Haemorrhagic stroke [None]
  - Peroneal nerve palsy [None]
  - Pain in extremity [None]
  - Condition aggravated [None]

NARRATIVE: CASE EVENT DATE: 20211216
